FAERS Safety Report 4596108-0 (Version None)
Quarter: 2005Q1

REPORT INFORMATION
  Report Type: 
  Country: None (occurrence: None)
  Receive Date: 20050225
  Receipt Date: 20050213
  Transmission Date: 20050727
  Serious: Yes (Hospitalization)
  Sender: FDA-Public Use
  Company Number: 212468

PATIENT
  Age: 54 Year
  Sex: Female
  Weight: 51 kg

DRUGS (8)
  1. MABTHERA (RITUXIMAB) [Suspect]
     Indication: LYMPHOMA
     Dosage: 600 MG, INTRAVENOUS
     Route: 042
     Dates: start: 20040420, end: 20040803
  2. CYCLOPHOSPHAMIDE [Suspect]
     Indication: LYMPHOMA
     Dosage: 200 MG, INTRAVENOUS
     Route: 042
     Dates: start: 20040420, end: 20040803
  3. DOXORUBICIN HCL [Suspect]
     Indication: LYMPHOMA
     Dosage: 810 MG, INTRAVENOUS
     Route: 042
     Dates: start: 20040420, end: 20040803
  4. VINCRISTINE [Suspect]
     Indication: LYMPHOMA
     Dosage: 2 MG, INTRAVENOUS
     Route: 042
     Dates: start: 20040420, end: 20040803
  5. PREDNISONE [Suspect]
     Indication: LYMPHOMA
     Dosage: 500 MG
     Dates: start: 20040420, end: 20040803
  6. TROPISETRON (TROPISETRON HYDROCHLORIDE) [Concomitant]
  7. CHLORPHENAMINE (CHLORPHENIRAMINE MALEATE) [Concomitant]
  8. HYDROCORTISONE [Concomitant]

REACTIONS (2)
  - DEEP VEIN THROMBOSIS [None]
  - ILIAC VEIN THROMBOSIS [None]
